FAERS Safety Report 7030641-7 (Version None)
Quarter: 2010Q4

REPORT INFORMATION
  Report Type: 
  Country: None (occurrence: None)
  Receive Date: 20101001
  Receipt Date: 20100921
  Transmission Date: 20110411
  Serious: Yes (Other)
  Sender: FDA-Public Use
  Company Number: CRC-10-165

PATIENT
  Age: 56 Year
  Sex: Female
  Weight: 84.8226 kg

DRUGS (2)
  1. OXALIPLATIN [Suspect]
     Indication: COLON CANCER
     Dosage: EVERY TWO WEEKS IV
     Route: 042
     Dates: start: 20100914
  2. OXALIPLATIN [Suspect]
     Indication: COLON CANCER
     Dosage: EVERY TWO WEEKS IV
     Route: 042
     Dates: start: 20100914

REACTIONS (2)
  - DYSPEPSIA [None]
  - HYPERTENSION [None]
